FAERS Safety Report 11177584 (Version 3)
Quarter: 2015Q2

REPORT INFORMATION
  Report Type: Spontaneous
  Country: BR (occurrence: BR)
  Receive Date: 20150610
  Receipt Date: 20150617
  Transmission Date: 20150821
  Serious: Yes (Other)
  Sender: FDA-Public Use
  Company Number: BR-PFIZER INC-2015195107

PATIENT
  Age: 52 Year
  Sex: Female
  Weight: 59 kg

DRUGS (5)
  1. OLMETEC HCT [Suspect]
     Active Substance: HYDROCHLOROTHIAZIDE\OLMESARTAN MEDOXOMIL
     Indication: HYPERTENSION
     Dosage: 1 DF, DAILY IN THE MORNING
     Route: 048
     Dates: start: 2007
  2. LIPITOR [Suspect]
     Active Substance: ATORVASTATIN CALCIUM
     Indication: BLOOD CHOLESTEROL
     Dosage: 1 TABLET OF 20 MG, DAILY (HALF HOUR BEFORE LUNCH)
     Route: 048
     Dates: start: 2007
  3. APLAUSE [Suspect]
     Active Substance: BLACK COHOSH
     Indication: MENOPAUSE
     Dosage: UNK
     Dates: start: 2013
  4. GASTROL [Concomitant]
     Indication: GASTRITIS
     Dosage: 1 DF, DAILY BEFORE BREAKFAST
     Route: 048
     Dates: start: 2012
  5. BUONA [Concomitant]
     Indication: MENOPAUSE
     Dosage: 1 DF, DAILY AT NIGHT
     Route: 048

REACTIONS (2)
  - Pruritus [Unknown]
  - Shock [Unknown]

NARRATIVE: CASE EVENT DATE: 2013
